FAERS Safety Report 6013194-1 (Version None)
Quarter: 2008Q4

REPORT INFORMATION
  Report Type: 
  Country: None (occurrence: None)
  Receive Date: 20081219
  Receipt Date: 20081215
  Transmission Date: 20090506
  Serious: Yes (Hospitalization)
  Sender: FDA-Public Use
  Company Number: US-ELI_LILLY_AND_COMPANY-US200812003820

PATIENT
  Sex: Male
  Weight: 102.95 kg

DRUGS (7)
  1. BYETTA [Suspect]
     Indication: TYPE 2 DIABETES MELLITUS
     Dosage: 5 UG, 2/D
     Route: 058
     Dates: start: 20080901, end: 20081001
  2. BYETTA [Suspect]
     Dosage: 10 UG, 2/D
     Route: 058
     Dates: start: 20081001
  3. AMLODIPINE [Concomitant]
     Dosage: 5 MG, DAILY (1/D)
  4. PRILOSEC [Concomitant]
     Dosage: 20 MG, DAILY (1/D)
  5. METFORMIN HCL [Concomitant]
     Dosage: 500 MG, 2/D
  6. GLIMEPIRIDE [Concomitant]
     Dosage: UNK, EACH EVENING
  7. OXYCODONE [Concomitant]
     Dosage: UNK, AS NEEDED

REACTIONS (7)
  - DECREASED APPETITE [None]
  - DYSGEUSIA [None]
  - GAIT DISTURBANCE [None]
  - MUSCLE DISORDER [None]
  - NAUSEA [None]
  - NERVE COMPRESSION [None]
  - WEIGHT DECREASED [None]
